FAERS Safety Report 6925970-9 (Version None)
Quarter: 2010Q3

REPORT INFORMATION
  Report Type: 
  Country: None (occurrence: None)
  Receive Date: 20100816
  Receipt Date: 20100813
  Transmission Date: 20110219
  Serious: Yes (Death)
  Sender: FDA-Public Use
  Company Number: PHHY2010PH42067

PATIENT
  Age: 80 Year
  Sex: Male

DRUGS (1)
  1. EXJADE [Suspect]
     Route: 048

REACTIONS (1)
  - CARDIAC ARREST [None]
